FAERS Safety Report 19905400 (Version 1)
Quarter: 2021Q3

REPORT INFORMATION
  Report Type: Spontaneous
  Country: US (occurrence: US)
  Receive Date: 20210930
  Receipt Date: 20210930
  Transmission Date: 20211014
  Serious: No
  Sender: FDA-Public Use
  Company Number: None

PATIENT

DRUGS (2)
  1. ZONISAMIDE 400MG [Suspect]
     Active Substance: ZONISAMIDE
  2. ZONISAMIDE 600MG [Suspect]
     Active Substance: ZONISAMIDE

REACTIONS (3)
  - Wrong product stored [None]
  - Product use issue [None]
  - Incorrect dose administered [None]
